FAERS Safety Report 6814984-5 (Version None)
Quarter: 2010Q2

REPORT INFORMATION
  Report Type: 
  Country: None (occurrence: None)
  Receive Date: 20100630
  Receipt Date: 20100630
  Transmission Date: 20101027
  Serious: Yes (Hospitalization)
  Sender: FDA-Public Use
  Company Number: None

PATIENT
  Age: 51 Year
  Sex: Male
  Weight: 66 kg

DRUGS (33)
  1. ATAZANAVIR [Suspect]
     Indication: HIV INFECTION
     Dosage: PO
     Route: 048
     Dates: start: 20100127, end: 20100224
  2. RALTEGRAVIR 400 MG MERCK [Suspect]
     Indication: HIV INFECTION
     Dosage: 400 MG TWICE DAILY PO
     Route: 048
     Dates: start: 20100127, end: 20100224
  3. EMTRICITABINE/TENOFOVIR DISOPROXIL FUMARATE [Concomitant]
  4. RITONAVIR [Concomitant]
  5. ACETAMINOPHEN [Concomitant]
  6. ALBUTEROL [Concomitant]
  7. BARIUM SULFATE [Concomitant]
  8. D5 1/2NS [Concomitant]
  9. DEXTROSE 5% [Concomitant]
  10. DEXTROSE [Concomitant]
  11. DIPHENHYDRAMINE HCL [Concomitant]
  12. ESOMEPRAZOLE MAGNESIUM [Concomitant]
  13. FUROSEMIDE [Concomitant]
  14. HEPARIN [Concomitant]
  15. HUMAN INSULIN [Concomitant]
  16. IOVERSAL [Concomitant]
  17. LACTULOSE [Concomitant]
  18. LIDOCAINE [Concomitant]
  19. LORAZEPAM [Concomitant]
  20. METRONIDAZOLE [Concomitant]
  21. MORPHINE [Concomitant]
  22. MULTI-VITAMIN [Concomitant]
  23. NS [Concomitant]
  24. NUTRIHEP -ENTERAL FEEDING- [Concomitant]
  25. ONDANSETRON [Concomitant]
  26. OXYCODONE HCL AND ACETAMINOPHEN [Concomitant]
  27. PHOSPHORUS [Concomitant]
  28. PHYTONADIONE [Concomitant]
  29. PIPERACILLIN AND TAZOBACTAM [Concomitant]
  30. SODIUM POLYSTYRENE SULFONATE [Concomitant]
  31. SPIRONOLACTONE [Concomitant]
  32. TRAIMCINOLONE -TOPICAL- [Concomitant]
  33. VANCOMYCIN [Concomitant]

REACTIONS (4)
  - DERMATITIS EXFOLIATIVE [None]
  - DRUG RASH WITH EOSINOPHILIA AND SYSTEMIC SYMPTOMS [None]
  - ENCEPHALOPATHY [None]
  - HEPATIC FAILURE [None]
